FAERS Safety Report 13256487 (Version 1)
Quarter: 2017Q1

REPORT INFORMATION
  Report Type: Spontaneous
  Country: FR (occurrence: FR)
  Receive Date: 20170221
  Receipt Date: 20170221
  Transmission Date: 20170428
  Serious: Yes (Hospitalization)
  Sender: FDA-Public Use
  Company Number: FR-PFIZER INC-2017067038

PATIENT
  Age: 72 Year
  Sex: Female

DRUGS (5)
  1. KARDEGIC [Concomitant]
     Active Substance: ASPIRIN LYSINE
     Dosage: 75 MG, ONCE DAILY
  2. CORTANCYL [Concomitant]
     Active Substance: PREDNISONE
     Dosage: 60 MG, ONCE A DAY
  3. FLECAINE [Suspect]
     Active Substance: FLECAINIDE
     Dosage: UNK
     Route: 048
     Dates: end: 20161026
  4. TAHOR [Suspect]
     Active Substance: ATORVASTATIN CALCIUM
     Dosage: UNK
     Dates: start: 2012, end: 20161026
  5. INEXIUM [Concomitant]
     Active Substance: ESOMEPRAZOLE
     Dosage: 20 MG, ONCE DAILY

REACTIONS (2)
  - Interstitial lung disease [Recovering/Resolving]
  - Organising pneumonia [Recovering/Resolving]

NARRATIVE: CASE EVENT DATE: 20161022
